FAERS Safety Report 18196795 (Version 2)
Quarter: 2020Q4

REPORT INFORMATION
  Report Type: Spontaneous
  Country: US (occurrence: US)
  Receive Date: 20200826
  Receipt Date: 20201015
  Transmission Date: 20210113
  Serious: Yes (Hospitalization, Other)
  Sender: FDA-Public Use
  Company Number: US-LUPIN PHARMACEUTICALS INC.-2020-05171

PATIENT
  Age: 82 Year
  Sex: Male

DRUGS (7)
  1. DEXTROSE. [Concomitant]
     Active Substance: DEXTROSE
     Indication: DISEASE PROGRESSION
     Dosage: UNK (IGF METHOTREXATE IV INFUSION IN 250ML OF 5% GLUCOSE ON DAYS 1, 8, AND 15 OF A FOUR-WEEK TREATME
     Route: 042
     Dates: start: 201802, end: 2018
  2. DEXTROSE. [Concomitant]
     Active Substance: DEXTROSE
     Indication: MYELODYSPLASTIC SYNDROME
  3. INSULIN LIKE GROWTH FACTOR I (HUMAN) [Suspect]
     Active Substance: MECASERMIN
     Indication: MYELODYSPLASTIC SYNDROME
     Dosage: 0.20 MICROEQ/KG AS A 90-MIN INFUSION IN 250 ML OF 5% GLUCOSE ON DAYS 1, 8, AND 15 OF A FOUR-WEEK TRE
     Route: 042
     Dates: start: 201802, end: 2018
  4. METHOTREXAAT [METHOTREXATE] [Suspect]
     Active Substance: METHOTREXATE
     Indication: DISEASE PROGRESSION
  5. LOSARTAN. [Suspect]
     Active Substance: LOSARTAN
     Indication: HYPERTENSION
     Dosage: UNK
     Route: 065
  6. INSULIN LIKE GROWTH FACTOR I (HUMAN) [Suspect]
     Active Substance: MECASERMIN
     Indication: DISEASE PROGRESSION
  7. METHOTREXAAT [METHOTREXATE] [Suspect]
     Active Substance: METHOTREXATE
     Indication: MYELODYSPLASTIC SYNDROME
     Dosage: 0.20 MICROEQ/KG AS A 90-MIN INFUSION IN 250 ML OF 5% GLUCOSE ON DAYS 1, 8, AND 15 OF A FOUR-WEEK TRE
     Route: 042
     Dates: start: 201802, end: 2018

REACTIONS (2)
  - Orthostatic hypotension [Unknown]
  - Syncope [Unknown]

NARRATIVE: CASE EVENT DATE: 2018
